FAERS Safety Report 11616050 (Version 1)
Quarter: 2015Q4

REPORT INFORMATION
  Report Type: Spontaneous
  Country: US (occurrence: None)
  Receive Date: 20151008
  Receipt Date: 20151008
  Transmission Date: 20160304
  Serious: Yes (Life-Threatening, Hospitalization)
  Sender: FDA-Public Use
  Company Number: None

PATIENT
  Age: 42 Year
  Sex: Female
  Weight: 83.6 kg

DRUGS (2)
  1. IOHEXOL [Suspect]
     Active Substance: IOHEXOL
     Indication: UROGRAM
     Route: 042
     Dates: start: 20150930, end: 20150930
  2. IOHEXOL [Suspect]
     Active Substance: IOHEXOL
     Indication: URINARY INCONTINENCE
     Route: 042
     Dates: start: 20150930, end: 20150930

REACTIONS (11)
  - Vision blurred [None]
  - Headache [None]
  - Tachycardia [None]
  - Respiratory depression [None]
  - Nausea [None]
  - Throat tightness [None]
  - Anaphylactic reaction [None]
  - Hypertension [None]
  - Contrast media reaction [None]
  - Feeling hot [None]
  - Tremor [None]

NARRATIVE: CASE EVENT DATE: 20150930
